FAERS Safety Report 10404033 (Version 1)
Quarter: 2014Q1

REPORT INFORMATION
  Report Type: Spontaneous
  Country: US (occurrence: None)
  Receive Date: 20131018
  Receipt Date: 20131018
  Transmission Date: 20141002
  Serious: Yes (Disabling)
  Sender: FDA-Public Use
  Company Number: E2B_00001027

PATIENT
  Age: 69 Year
  Sex: Female
  Weight: 83.46 kg

DRUGS (11)
  1. LEVOFLOXACIN [Suspect]
     Indication: PNEUMONIA
     Route: 048
     Dates: start: 20130326, end: 20130420
  2. LEVOFLOXACIN [Suspect]
     Indication: BRONCHITIS
     Route: 048
     Dates: start: 20130326, end: 20130420
  3. LORAZEPAM [Concomitant]
  4. CYCLOBENZAPRINE (FLEXERIL) [Concomitant]
  5. TRAMADOL [Concomitant]
  6. PANTOPRAZOLE [Concomitant]
  7. GABAPENTIN [Concomitant]
  8. PRAVASTATIN [Concomitant]
  9. LEVOTHYROXINE [Concomitant]
  10. HYDROCODONE / ACETAMINOPHEN [Concomitant]
  11. CETIRIZINE [Concomitant]

REACTIONS (13)
  - Tendon rupture [None]
  - Rotator cuff syndrome [None]
  - Trigger finger [None]
  - Confusional state [None]
  - Insomnia [None]
  - Nausea [None]
  - Dyspepsia [None]
  - Pruritus [None]
  - Photosensitivity reaction [None]
  - Gait disturbance [None]
  - Drug ineffective [None]
  - Pain [None]
  - Tendon disorder [None]
